FAERS Safety Report 6037386-0 (Version None)
Quarter: 2009Q1

REPORT INFORMATION
  Report Type: 
  Country: None (occurrence: None)
  Receive Date: 20090114
  Receipt Date: 20081204
  Transmission Date: 20090719
  Serious: Yes (Hospitalization, Other)
  Sender: FDA-Public Use
  Company Number: US-PFIZER INC-2008089846

PATIENT
  Age: 62 Year
  Sex: Female

DRUGS (7)
  1. LIPITOR [Interacting]
     Dosage: UNK
     Dates: start: 20010101, end: 20081023
  2. NORVASC [Interacting]
     Dosage: UNK
  3. PREDNISONE [Suspect]
     Indication: RESPIRATORY TRACT INFECTION
     Dosage: UNK
     Dates: start: 20081027
  4. SPIRIVA [Interacting]
     Indication: CHRONIC OBSTRUCTIVE PULMONARY DISEASE
     Dosage: 18 UG, 1X/DAY
     Route: 055
     Dates: start: 20080801
  5. SEREVENT [Suspect]
     Indication: EMPHYSEMA
     Dosage: UNK
     Dates: start: 20080801
  6. LISINOPRIL [Concomitant]
     Indication: HYPERTENSION
     Dosage: UNK
  7. ACETYLSALICYLIC ACID [Concomitant]
     Indication: CARDIAC DISORDER
     Dosage: UNK

REACTIONS (10)
  - ARTHRALGIA [None]
  - BONE PAIN [None]
  - DRUG INTERACTION [None]
  - LUNG NEOPLASM [None]
  - MUSCULOSKELETAL PAIN [None]
  - MYALGIA [None]
  - NECK PAIN [None]
  - PAIN IN EXTREMITY [None]
  - PNEUMONIA [None]
  - RESPIRATORY TRACT INFECTION [None]
